FAERS Safety Report 5009083-1 (Version None)
Quarter: 2006Q2

REPORT INFORMATION
  Report Type: 
  Country: None (occurrence: None)
  Receive Date: 20060523
  Receipt Date: 20060516
  Transmission Date: 20061013
  Serious: Yes (Other)
  Sender: FDA-Public Use
  Company Number: US-ABBOTT-06P-163-0333322-00

PATIENT
  Age: 47 Year
  Sex: Female
  Weight: 44.038 kg

DRUGS (3)
  1. VICODIN [Suspect]
     Indication: PAIN
     Route: 048
     Dates: start: 20060420
  2. AF DEFENSE SPRAY POWDER [Suspect]
     Indication: PRURITUS
     Route: 061
     Dates: start: 20060411, end: 20060420
  3. LAMILSILK DAILY HYDRATING CREAM [Suspect]
     Indication: DRY SKIN
     Route: 061
     Dates: start: 20060415, end: 20060420

REACTIONS (5)
  - CELLULITIS [None]
  - NAUSEA [None]
  - OEDEMA PERIPHERAL [None]
  - PAIN IN EXTREMITY [None]
  - WOUND DRAINAGE [None]
